FAERS Safety Report 5869530-X (Version None)
Quarter: 2008Q3

REPORT INFORMATION
  Report Type: 
  Country: None (occurrence: None)
  Receive Date: 20080904
  Receipt Date: 20080825
  Transmission Date: 20090109
  Serious: Yes (Hospitalization)
  Sender: FDA-Public Use
  Company Number: DE-JNJFOC-20080700851

PATIENT
  Sex: Male
  Weight: 80 kg

DRUGS (3)
  1. INVEGA [Suspect]
     Indication: SCHIZOPHRENIA, PARANOID TYPE
     Route: 048
  2. ALCOHOL [Interacting]
     Indication: DRUG USE FOR UNKNOWN INDICATION
     Route: 065
  3. TRUXAL [Concomitant]
     Indication: SCHIZOPHRENIA, PARANOID TYPE
     Route: 048

REACTIONS (2)
  - DRUG EFFECT DECREASED [None]
  - DRUG INTERACTION [None]
